FAERS Safety Report 5740070-1 (Version None)
Quarter: 2008Q2

REPORT INFORMATION
  Report Type: 
  Country: None (occurrence: None)
  Receive Date: 20080516
  Receipt Date: 20080507
  Transmission Date: 20081010
  Serious: Yes (Other)
  Sender: FDA-Public Use
  Company Number: PHHY2008AU07381

PATIENT
  Age: 30 Year
  Sex: Male
  Weight: 72 kg

DRUGS (2)
  1. FAMVIR [Suspect]
     Dosage: 3 DF/DAY
     Dates: start: 19970110, end: 19970113
  2. MS CONTIN [Concomitant]
     Indication: PAIN
     Dosage: 60MG/DAY
     Dates: start: 19970110, end: 19970113

REACTIONS (4)
  - DYSPHAGIA [None]
  - HYPERHIDROSIS [None]
  - MICTURITION DISORDER [None]
  - PRURITUS [None]
